FAERS Safety Report 6966928-3 (Version None)
Quarter: 2010Q3

REPORT INFORMATION
  Report Type: 
  Country: None (occurrence: None)
  Receive Date: 20100906
  Receipt Date: 20100826
  Transmission Date: 20110219
  Serious: Yes (Other)
  Sender: FDA-Public Use
  Company Number: US-NOVOPROD-314079

PATIENT

DRUGS (1)
  1. NORDITROPIN NORDIFLEX [Suspect]
     Dosage: UNK
     Dates: start: 20070101

REACTIONS (1)
  - PITUITARY TUMOUR BENIGN [None]
